FAERS Safety Report 5265645-8 (Version None)
Quarter: 2007Q1

REPORT INFORMATION
  Report Type: 
  Country: None (occurrence: None)
  Receive Date: 20061213
  Receipt Date: 20030606
  Transmission Date: 20070707
  Serious: Yes (Other)
  Sender: FDA-Public Use
  Company Number: 2003UW07269

PATIENT
  Age: 70 Year
  Sex: Male

DRUGS (2)
  1. IRESSA [Suspect]
     Dosage: 250 MG PO
     Route: 048
     Dates: start: 20030501, end: 20030602
  2. BLOOD PRESSURE MEDICATION [Concomitant]

REACTIONS (7)
  - ASTHENIA [None]
  - COUGH [None]
  - DYSPEPSIA [None]
  - DYSPNOEA [None]
  - EATING DISORDER [None]
  - FATIGUE [None]
  - GAIT DISTURBANCE [None]
